FAERS Safety Report 16990064 (Version 3)
Quarter: 2019Q4

REPORT INFORMATION
  Report Type: Spontaneous
  Country: US (occurrence: US)
  Receive Date: 20191104
  Receipt Date: 20191213
  Transmission Date: 20200122
  Serious: Yes (Hospitalization, Other)
  Sender: FDA-Public Use
  Company Number: US-VIFOR (INTERNATIONAL) INC.-VIT-2019-11877

PATIENT
  Age: 58 Year
  Sex: Female

DRUGS (1)
  1. VELTASSA [Suspect]
     Active Substance: PATIROMER
     Indication: HYPERKALAEMIA
     Route: 048
     Dates: start: 201908

REACTIONS (4)
  - Bronchitis [Unknown]
  - Dizziness [Unknown]
  - Fall [Unknown]
  - Pneumonia [Unknown]

NARRATIVE: CASE EVENT DATE: 20191022
